FAERS Safety Report 10402653 (Version 1)
Quarter: 2014Q3

REPORT INFORMATION
  Report Type: Spontaneous
  Country: GB (occurrence: None)
  Receive Date: 20140820
  Receipt Date: 20140820
  Transmission Date: 20150326
  Serious: Yes (Other)
  Sender: FDA-Public Use
  Company Number: FK201403311

PATIENT
  Age: 62 Year
  Sex: Female
  Weight: 72 kg

DRUGS (8)
  1. LETROZOLE (LETROZOLE) [Suspect]
     Active Substance: LETROZOLE
     Indication: BREAST CANCER
     Route: 048
     Dates: start: 2013, end: 2013
  2. L-THYROXINE (LEVOTHYROXINE) [Concomitant]
     Active Substance: LEVOTHYROXINE
  3. MULTIVITAMIN (VIGRAN) [Concomitant]
  4. GLUCOSAMINE (GLUCOSAMINE) [Concomitant]
     Active Substance: GLUCOSAMINE
  5. ALLOPURINOL (ALLOPURINOL) [Concomitant]
     Active Substance: ALLOPURINOL
  6. TAMOXIFEN [Suspect]
     Active Substance: TAMOXIFEN
     Indication: BREAST CANCER
     Route: 048
     Dates: start: 201008
  7. CALCIUM + VITAMIN D3 (LEKOVIT CA) [Concomitant]
  8. MSM [Concomitant]
     Active Substance: DIMETHYL SULFONE

REACTIONS (9)
  - Disturbance in attention [None]
  - Arthritis [None]
  - Gastroenteritis [None]
  - Hot flush [None]
  - Loss of consciousness [None]
  - Cardiovascular disorder [None]
  - Alcohol interaction [None]
  - Muscle atrophy [None]
  - Depression [None]
